FAERS Safety Report 17434882 (Version 1)
Quarter: 2020Q1

REPORT INFORMATION
  Report Type: Spontaneous
  Country: DE (occurrence: DE)
  Receive Date: 20200219
  Receipt Date: 20200219
  Transmission Date: 20200409
  Serious: Yes (Other)
  Sender: FDA-Public Use
  Company Number: NVSC2020DE039142

PATIENT
  Sex: Female

DRUGS (1)
  1. PRAMIPEXOLE. [Suspect]
     Active Substance: PRAMIPEXOLE
     Indication: PRODUCT USED FOR UNKNOWN INDICATION
     Dosage: UNK (UNKNOWN FORM STRENGTH)
     Route: 065

REACTIONS (2)
  - Restlessness [Not Recovered/Not Resolved]
  - Suicidal ideation [Not Recovered/Not Resolved]
